FAERS Safety Report 5100927-1 (Version None)
Quarter: 2006Q3

REPORT INFORMATION
  Report Type: 
  Country: None (occurrence: None)
  Receive Date: 20060731
  Receipt Date: 20060614
  Transmission Date: 20061208
  Serious: No
  Sender: FDA-Public Use
  Company Number: 2006PV015641

PATIENT
  Age: 36 Year
  Sex: Male
  Weight: 167.8309 kg

DRUGS (2)
  1. BYETTA [Suspect]
     Indication: DIABETES MELLITUS NON-INSULIN-DEPENDENT
     Dosage: 10 MCG;BID;SC
     Route: 058
     Dates: start: 20050701, end: 20060501
  2. AVANDIA [Concomitant]

REACTIONS (1)
  - WEIGHT DECREASED [None]
